FAERS Safety Report 10015278 (Version 2)
Quarter: 2016Q4

REPORT INFORMATION
  Report Type: Spontaneous
  Country: US (occurrence: US)
  Receive Date: 20140317
  Receipt Date: 20161201
  Transmission Date: 20170206
  Serious: Yes (Other)
  Sender: FDA-Public Use
  Company Number: US-PFIZER INC-2014072321

PATIENT
  Age: 35 Year
  Sex: Male

DRUGS (1)
  1. TETRACYCLINE HCL [Suspect]
     Active Substance: TETRACYCLINE HYDROCHLORIDE
     Indication: CHLAMYDIAL INFECTION
     Dosage: UNK
     Dates: start: 200904, end: 2009

REACTIONS (3)
  - Drug hypersensitivity [Unknown]
  - Generalised erythema [Unknown]
  - Erythema multiforme [Unknown]

NARRATIVE: CASE EVENT DATE: 200904
